FAERS Safety Report 6140071-8 (Version None)
Quarter: 2009Q2

REPORT INFORMATION
  Report Type: 
  Country: None (occurrence: None)
  Receive Date: 20090401
  Receipt Date: 20090319
  Transmission Date: 20091009
  Serious: Yes (Hospitalization)
  Sender: FDA-Public Use
  Company Number: FR-ELI_LILLY_AND_COMPANY-FR200903004785

PATIENT
  Sex: Male

DRUGS (2)
  1. ZYPREXA [Suspect]
     Dosage: 20 UG, DAILY (1/D)
     Route: 048
     Dates: start: 20080901
  2. HALDOL [Concomitant]
     Dosage: 2 MG, DAILY (1/D)
     Dates: start: 20090317

REACTIONS (1)
  - LIVER INJURY [None]
